FAERS Safety Report 15504645 (Version 1)
Quarter: 2018Q4

REPORT INFORMATION
  Report Type: Spontaneous
  Country: US (occurrence: US)
  Receive Date: 20181016
  Receipt Date: 20181016
  Transmission Date: 20190205
  Serious: No
  Sender: FDA-Public Use
  Company Number: US-SA-2018SA282543

PATIENT
  Age: 47 Year
  Sex: Female

DRUGS (1)
  1. GOLD BOND ULTIMATE PSORIASIS RELIEF CREAM [Suspect]
     Active Substance: SALICYLIC ACID
     Indication: PSORIASIS

REACTIONS (1)
  - Psoriasis [Unknown]

NARRATIVE: CASE EVENT DATE: 20181004
